FAERS Safety Report 5754524 (Version 6)
Quarter: 2020Q3

REPORT INFORMATION
  Report Type: Report from Study
  Country: US (occurrence: US)
  Receive Date: 20050310
  Receipt Date: 20200930
  Transmission Date: 20201104
  Serious: Yes (Life-Threatening, Hospitalization)
  Sender: FDA-Public Use
  Company Number: US-JNJFOC-20050202360

PATIENT
  Age: 81 Year
  Sex: Female
  Weight: 64.92 kg

DRUGS (21)
  1. GAVISCON [Concomitant]
     Active Substance: ALUMINUM HYDROXIDE\MAGNESIUM CARBONATE
     Route: 048
  2. PREVACID [Concomitant]
     Active Substance: LANSOPRAZOLE
     Indication: GASTROOESOPHAGEAL REFLUX DISEASE
  3. VITAMIN E [Concomitant]
     Active Substance: .ALPHA.-TOCOPHEROL
     Indication: ACNE
     Route: 048
  4. OMEGA 3 [Concomitant]
     Active Substance: OMEGA-3 FATTY ACIDS
     Indication: NUTRITIONAL SUPPLEMENTATION
     Route: 048
  5. NEXIUM [Concomitant]
     Active Substance: ESOMEPRAZOLE MAGNESIUM
     Indication: GASTROOESOPHAGEAL REFLUX DISEASE
     Route: 048
     Dates: start: 20031010, end: 20050120
  6. CITRUCEL [Concomitant]
     Active Substance: METHYLCELLULOSE (4000 MPA.S)
     Indication: CONSTIPATION
     Dosage: 2 TABS 2 TIMES DAILY AS NEEDED
     Route: 048
     Dates: start: 20030910, end: 20050120
  7. COLACE [Concomitant]
     Active Substance: DOCUSATE SODIUM
     Dates: start: 20031120, end: 20050120
  8. FLAXSEED [Concomitant]
     Active Substance: FLAX SEED
     Indication: NUTRITIONAL SUPPLEMENTATION
     Route: 048
  9. DICETEL [Concomitant]
     Active Substance: PINAVERIUM BROMIDE
     Indication: PRODUCT USED FOR UNKNOWN INDICATION
  10. CISAPRIDE [Suspect]
     Active Substance: CISAPRIDE
     Indication: GASTROOESOPHAGEAL REFLUX DISEASE
     Route: 048
     Dates: start: 20020820, end: 20050120
  11. CISAPRIDE [Suspect]
     Active Substance: CISAPRIDE
     Indication: GASTROINTESTINAL MOTILITY DISORDER
     Route: 048
     Dates: start: 20050310
  12. PEPCID [Concomitant]
     Active Substance: FAMOTIDINE
     Indication: DYSPEPSIA
     Route: 048
     Dates: start: 20031001, end: 20050120
  13. REFRESH [Concomitant]
     Active Substance: UNSPECIFIED INGREDIENT
     Indication: DRY EYE
     Route: 001
     Dates: start: 20040215, end: 20050120
  14. DIAPER RASH OINTMENT [Concomitant]
     Indication: DERMATITIS DIAPER
     Route: 061
     Dates: start: 20040103, end: 20050120
  15. MIACALCIN [Concomitant]
     Active Substance: CALCITONIN SALMON
     Indication: OSTEOPOROSIS
     Dosage: ALTERNATE 1 SPRAY IN NOSTRIL DAILY
  16. DETROL [Concomitant]
     Active Substance: TOLTERODINE TARTRATE
     Indication: URINARY INCONTINENCE
     Dates: start: 20021003, end: 20050120
  17. VITAMIN D [Concomitant]
     Active Substance: VITAMIN D NOS
     Indication: PROPHYLAXIS
     Route: 048
  18. VITAMIN C [Concomitant]
     Active Substance: ASCORBIC ACID
     Indication: PRODUCT USED FOR UNKNOWN INDICATION
     Route: 048
  19. TYLENOL [Concomitant]
     Active Substance: ACETAMINOPHEN
     Indication: PAIN
  20. ALBUTEROL. [Concomitant]
     Active Substance: ALBUTEROL
     Indication: ASTHMA
     Route: 045
     Dates: start: 20040203, end: 20050120
  21. INJUR?HEAL OIL [Concomitant]
     Indication: MYALGIA
     Route: 061
     Dates: start: 20040401, end: 20050120

REACTIONS (7)
  - Pleural effusion [Unknown]
  - Generalised oedema [Unknown]
  - Sinus tachycardia [Unknown]
  - Oral candidiasis [Not Recovered/Not Resolved]
  - Pseudomembranous colitis [Recovered/Resolved with Sequelae]
  - Hypoalbuminaemia [Not Recovered/Not Resolved]
  - Urinary tract infection [Unknown]

NARRATIVE: CASE EVENT DATE: 20050127
